FAERS Safety Report 17729752 (Version 1)
Quarter: 2020Q2

REPORT INFORMATION
  Report Type: Spontaneous
  Country: FR (occurrence: FR)
  Receive Date: 20200430
  Receipt Date: 20200430
  Transmission Date: 20200714
  Serious: Yes (Other)
  Sender: FDA-Public Use
  Company Number: FR-ASTRAZENECA-2020SE54592

PATIENT
  Age: 4 Year
  Sex: Female

DRUGS (2)
  1. MOPRAL [Suspect]
     Active Substance: OMEPRAZOLE
     Dosage: NOT ADMINISTERED
     Route: 048
  2. EFFEXOR [Suspect]
     Active Substance: VENLAFAXINE HYDROCHLORIDE
     Indication: WRONG PRODUCT ADMINISTERED
     Dosage: 1.0DF ONCE/SINGLE ADMINISTRATION
     Route: 048
     Dates: start: 20200409

REACTIONS (6)
  - Agitation [Recovered/Resolved]
  - Medication error [Recovered/Resolved]
  - Wrong product administered [Recovered/Resolved]
  - Mydriasis [Recovered/Resolved]
  - Insomnia [Recovered/Resolved]
  - Nausea [Recovered/Resolved]

NARRATIVE: CASE EVENT DATE: 20200409
